FAERS Safety Report 8359765-9 (Version None)
Quarter: 2012Q2

REPORT INFORMATION
  Report Type: 
  Country: None (occurrence: None)
  Receive Date: 20120515
  Receipt Date: 20120508
  Transmission Date: 20120825
  Serious: Yes (Other)
  Sender: FDA-Public Use
  Company Number: PHHY2012BR019044

PATIENT
  Sex: Female

DRUGS (2)
  1. DIOVAN HCT [Suspect]
     Indication: HYPERTENSION
     Dosage: 1 DF (320/12.5 MG), DAILY
     Route: 048
  2. CAPTOPRIL [Suspect]
     Dosage: UNK
     Route: 048

REACTIONS (2)
  - URTICARIA [None]
  - INFARCTION [None]
